FAERS Safety Report 8247395-9 (Version None)
Quarter: 2012Q1

REPORT INFORMATION
  Report Type: 
  Country: None (occurrence: None)
  Receive Date: 20120330
  Receipt Date: 20120327
  Transmission Date: 20120608
  Serious: Yes (Hospitalization)
  Sender: FDA-Public Use
  Company Number: BR-PFIZER INC-2012079610

PATIENT
  Age: 65 Year
  Sex: Female

DRUGS (8)
  1. CLONAZEPAM [Concomitant]
     Indication: RELAXATION THERAPY
     Dosage: ONE TABLET (UNKNOWN DOSE), DAILY
  2. ATORVASTATIN CALCIUM [Suspect]
     Indication: BLOOD CHOLESTEROL
     Dosage: UNKNOWN DOSE, 1X/DAY
     Route: 048
     Dates: start: 20110101
  3. PHENYTOIN [Concomitant]
     Indication: RELAXATION THERAPY
     Dosage: 100MG, UNK
  4. HYDROCHLOROTHIAZIDE [Concomitant]
     Indication: BLOOD PRESSURE
     Dosage: 25 MG, 1X/DAY
  5. ATENOLOL [Concomitant]
     Indication: BLOOD PRESSURE
     Dosage: 25 MG, 1X/DAY
  6. LOSARTAN POTASSIUM [Concomitant]
     Indication: BLOOD PRESSURE
     Dosage: 50 MG, 1X/DAY
  7. LABIRIN [Concomitant]
     Indication: LABYRINTHITIS
     Dosage: ONE TABLET (UNKNOWN DOSE) DAILY
  8. ASPIRIN [Concomitant]
     Indication: ANTICOAGULANT THERAPY
     Dosage: 100MG, UNK

REACTIONS (1)
  - VENOUS OCCLUSION [None]
